FAERS Safety Report 7278228-5 (Version None)
Quarter: 2011Q1

REPORT INFORMATION
  Report Type: 
  Country: None (occurrence: None)
  Receive Date: 20110131
  Receipt Date: 20110108
  Transmission Date: 20110831
  Serious: Yes (Hospitalization)
  Sender: FDA-Public Use
  Company Number: 2011-0200

PATIENT
  Age: 41 Year
  Sex: Female

DRUGS (2)
  1. UNSPECIFIED TABLETS (ALL OTHER THERAPEUTIC PRODUCTS) [Suspect]
  2. APO-GO AMPOULES (APOMORPHINE HYDROCHLORIDE) [Suspect]
     Dosage: SUBCUTANEOUS
     Route: 058

REACTIONS (1)
  - HALLUCINATION [None]
